FAERS Safety Report 5866665-2 (Version None)
Quarter: 2008Q3

REPORT INFORMATION
  Report Type: 
  Country: None (occurrence: None)
  Receive Date: 20080902
  Receipt Date: 20080818
  Transmission Date: 20090109
  Serious: Yes (Hospitalization, Other)
  Sender: FDA-Public Use
  Company Number: JP-ABBOTT-08P-087-0449165-00

PATIENT
  Age: 70 Year
  Sex: Male

DRUGS (5)
  1. LEUPROLIDE ACETATE [Suspect]
     Indication: PROSTATE CANCER
     Route: 058
     Dates: start: 20060412
  2. LEUPROLIDE ACETATE [Suspect]
     Dates: start: 20060316, end: 20060316
  3. BICALUTAMIDE [Concomitant]
     Indication: PROSTATE CANCER
     Route: 048
  4. NAFTOPIDIL [Concomitant]
     Indication: POLLAKIURIA
     Route: 048
     Dates: start: 20071127, end: 20071227
  5. SOLIFENACIN [Concomitant]
     Indication: POLLAKIURIA
     Route: 048
     Dates: start: 20071227

REACTIONS (3)
  - DIVERTICULUM INTESTINAL [None]
  - MELAENA [None]
  - POLLAKIURIA [None]
